FAERS Safety Report 6539088-0 (Version None)
Quarter: 2010Q1

REPORT INFORMATION
  Report Type: 
  Country: None (occurrence: None)
  Receive Date: 20100115
  Receipt Date: 20100107
  Transmission Date: 20100710
  Serious: Yes (Hospitalization)
  Sender: FDA-Public Use
  Company Number: PHHO2010SE00811

PATIENT
  Sex: Male

DRUGS (1)
  1. ALISKIREN ALI+TAB [Suspect]
     Indication: ACUTE MYOCARDIAL INFARCTION
     Dosage: 150 MG DAILY DOSE
     Route: 048

REACTIONS (1)
  - CHEST PAIN [None]
